FAERS Safety Report 6234998-6 (Version None)
Quarter: 2009Q2

REPORT INFORMATION
  Report Type: 
  Country: None (occurrence: None)
  Receive Date: 20090617
  Receipt Date: 20071003
  Transmission Date: 20091009
  Serious: No
  Sender: FDA-Public Use
  Company Number: 268122

PATIENT
  Age: 90 Year
  Sex: Female

DRUGS (2)
  1. LEVEMIR [Suspect]
     Indication: BLOOD INSULIN
  2. LEVEMIR [Suspect]
     Indication: INSULIN-REQUIRING TYPE 2 DIABETES MELLITUS

REACTIONS (1)
  - INJECTION SITE HAEMORRHAGE [None]
